FAERS Safety Report 7240994-2 (Version None)
Quarter: 2011Q1

REPORT INFORMATION
  Report Type: 
  Country: None (occurrence: None)
  Receive Date: 20110120
  Receipt Date: 20110120
  Transmission Date: 20110831
  Serious: No
  Sender: FDA-Public Use
  Company Number: None

PATIENT
  Sex: Female
  Weight: 76.6579 kg

DRUGS (1)
  1. COZAAR [Suspect]
     Indication: HYPERTENSION
     Dosage: 50MG ONE DAILY  ORAL
     Route: 048
     Dates: start: 20060401

REACTIONS (2)
  - MUSCLE TIGHTNESS [None]
  - MUSCULAR WEAKNESS [None]
